FAERS Safety Report 12647198 (Version 1)
Quarter: 2016Q3

REPORT INFORMATION
  Report Type: Spontaneous
  Country: US (occurrence: None)
  Receive Date: 20160811
  Receipt Date: 20160811
  Transmission Date: 20161109
  Serious: Yes (Life-Threatening, Hospitalization)
  Sender: FDA-Public Use
  Company Number: None

PATIENT
  Sex: Female
  Weight: 68.04 kg

DRUGS (1)
  1. KYBELLA [Suspect]
     Active Substance: DEOXYCHOLIC ACID
     Indication: BODY FAT DISORDER
     Route: 003
     Dates: start: 20160718

REACTIONS (6)
  - Local swelling [None]
  - Renal impairment [None]
  - Skin ulcer [None]
  - Skin induration [None]
  - Erythema [None]
  - Haemodialysis [None]

NARRATIVE: CASE EVENT DATE: 20160719
